FAERS Safety Report 7056415-9 (Version None)
Quarter: 2010Q4

REPORT INFORMATION
  Report Type: 
  Country: None (occurrence: None)
  Receive Date: 20101018
  Receipt Date: 20101008
  Transmission Date: 20110411
  Serious: Yes (Hospitalization)
  Sender: FDA-Public Use
  Company Number: 2010SP037720

PATIENT
  Age: 81 Year
  Sex: Female

DRUGS (7)
  1. MIRTAZAPINE [Suspect]
     Indication: DEPRESSION
     Dosage: 15 MG;PO
     Route: 048
     Dates: start: 20100522, end: 20100601
  2. LEVOTHYROXINE SODIUM [Concomitant]
  3. NIFEDIPINE [Concomitant]
  4. TOCOPHEROL CONCENTRATE CAP [Concomitant]
  5. PAXIL [Concomitant]
  6. LENDORMIN [Concomitant]
  7. SOLANAX [Concomitant]

REACTIONS (2)
  - EPILEPSY [None]
  - THIRST [None]
